FAERS Safety Report 7628290-2 (Version None)
Quarter: 2011Q3

REPORT INFORMATION
  Report Type: 
  Country: None (occurrence: None)
  Receive Date: 20110722
  Receipt Date: 20110714
  Transmission Date: 20111222
  Serious: Yes (Other)
  Sender: FDA-Public Use
  Company Number: JP-JNJFOC-20110609231

PATIENT
  Age: 69 Year
  Sex: Male

DRUGS (5)
  1. BORTEZOMIB [Suspect]
     Indication: MULTIPLE MYELOMA
     Route: 042
     Dates: start: 20100608, end: 20100611
  2. FENTANYL [Suspect]
     Route: 062
     Dates: start: 20081022, end: 20100615
  3. BORTEZOMIB [Suspect]
     Route: 042
     Dates: start: 20100713, end: 20110712
  4. FENTANYL [Suspect]
     Indication: CANCER PAIN
     Route: 062
     Dates: start: 20061223, end: 20081022
  5. FENTANYL [Suspect]
     Route: 062
     Dates: start: 20100622, end: 20110609

REACTIONS (17)
  - RADIAL NERVE PALSY [None]
  - INSOMNIA [None]
  - DIZZINESS [None]
  - MYELOPATHY [None]
  - CONSTIPATION [None]
  - DIARRHOEA [None]
  - DYSPNOEA [None]
  - NAUSEA [None]
  - DYSURIA [None]
  - PYREXIA [None]
  - VOMITING [None]
  - ABDOMINAL PAIN UPPER [None]
  - SOMNOLENCE [None]
  - NEUROPATHY PERIPHERAL [None]
  - HERPES ZOSTER [None]
  - MALAISE [None]
  - BACK PAIN [None]
